FAERS Safety Report 4701141-1 (Version None)
Quarter: 2005Q2

REPORT INFORMATION
  Report Type: 
  Country: None (occurrence: None)
  Receive Date: 20050628
  Receipt Date: 20011030
  Transmission Date: 20051028
  Serious: Yes (Hospitalization)
  Sender: FDA-Public Use
  Company Number: FR-GLAXOSMITHKLINE-B0125363A

PATIENT
  Age: 1 Day
  Sex: Male
  Weight: 2.8 kg

DRUGS (12)
  1. RETROVIR [Suspect]
     Indication: ANTIVIRAL PROPHYLAXIS
     Dosage: 12MG TWICE PER DAY
     Route: 048
     Dates: start: 20001107, end: 20001211
  2. AGENERASE [Suspect]
     Indication: HIV INFECTION
     Dates: end: 20000322
  3. EPIVIR [Suspect]
     Indication: HIV INFECTION
     Dates: end: 20000824
  4. RETROVIR [Suspect]
     Indication: HIV INFECTION
  5. RETROVIR [Suspect]
     Dates: start: 20001107, end: 20001107
  6. DIDANOSINE [Suspect]
     Indication: HIV INFECTION
     Dates: start: 20000824
  7. NELFINAVIR [Suspect]
     Indication: HIV INFECTION
     Dosage: 1250U TWICE PER DAY
     Dates: start: 20000824
  8. STAVUDINE [Suspect]
     Indication: HIV INFECTION
     Dates: end: 20000824
  9. AMOXICILLIN AND CLAVULANATE POTASSIUM [Concomitant]
  10. PARACETAMOL + CODEINE [Concomitant]
  11. PREDNISONE TAB [Concomitant]
  12. AMITRIPTYLINE HYDROCHLORIDE [Concomitant]

REACTIONS (11)
  - ANAEMIA [None]
  - BLOOD CREATININE INCREASED [None]
  - BLOOD UREA INCREASED [None]
  - CONGENITAL ANOMALY [None]
  - DRUG EXPOSURE DURING PREGNANCY [None]
  - FOETAL DISTRESS SYNDROME [None]
  - HEAD DEFORMITY [None]
  - HYPERTRIGLYCERIDAEMIA [None]
  - MACROCYTOSIS [None]
  - NEUTROPENIA [None]
  - THROMBOCYTHAEMIA [None]
